FAERS Safety Report 10190855 (Version 1)
Quarter: 2014Q2

REPORT INFORMATION
  Report Type: Spontaneous
  Country: ES (occurrence: ES)
  Receive Date: 20140523
  Receipt Date: 20140523
  Transmission Date: 20141212
  Serious: Yes (Other)
  Sender: FDA-Public Use
  Company Number: ES-ALEXION PHARMACEUTICALS INC.-A201401946

PATIENT
  Sex: 0

DRUGS (2)
  1. SOLIRIS 300MG [Suspect]
     Indication: PAROXYSMAL NOCTURNAL HAEMOGLOBINURIA
     Dosage: 900 MG, Q2W
     Route: 042
  2. CIPROFLOXACIN                      /00697202/ [Concomitant]
     Indication: IMMUNOSUPPRESSION
     Dosage: 500 MG, QD
     Route: 048
     Dates: start: 2013

REACTIONS (1)
  - Bone marrow failure [Unknown]
